FAERS Safety Report 24116954 (Version 4)
Quarter: 2024Q3

REPORT INFORMATION
  Report Type: Spontaneous
  Country: US (occurrence: US)
  Receive Date: 20240722
  Receipt Date: 20240910
  Transmission Date: 20241016
  Serious: No
  Sender: ROCHE
  Company Number: US-ROCHE-10000026982

PATIENT
  Age: 71 Year
  Sex: Female
  Weight: 53.52 kg

DRUGS (16)
  1. XOLAIR [Suspect]
     Active Substance: OMALIZUMAB
     Indication: Asthma
     Dosage: STRENGTH: 150MG/ML
     Route: 058
     Dates: start: 202101
  2. XOLAIR [Suspect]
     Active Substance: OMALIZUMAB
     Dosage: STRENGTH: 150MG/ML
     Route: 058
     Dates: start: 202401
  3. XOLAIR [Suspect]
     Active Substance: OMALIZUMAB
     Route: 058
     Dates: start: 2023
  4. XOLAIR [Suspect]
     Active Substance: OMALIZUMAB
     Route: 058
     Dates: start: 2023
  5. XOLAIR [Suspect]
     Active Substance: OMALIZUMAB
     Route: 058
     Dates: end: 2023
  6. ADVAIR HFA [Concomitant]
     Active Substance: FLUTICASONE PROPIONATE\SALMETEROL XINAFOATE
     Indication: Asthma
     Dosage: 115/21MG, 2 PUFFS TWICE A DAY
     Route: 055
  7. SINGULAIR [Concomitant]
     Active Substance: MONTELUKAST SODIUM
     Indication: Asthma
     Route: 048
  8. ROSUVASTATIN [Concomitant]
     Active Substance: ROSUVASTATIN\ROSUVASTATIN CALCIUM
     Indication: Blood cholesterol
     Dosage: SUNDAY AND WEDNESDAY
     Route: 048
     Dates: start: 2007
  9. WELLBUTRIN [Concomitant]
     Active Substance: BUPROPION HYDROCHLORIDE
     Indication: Stress
     Route: 048
  10. PEPCID [Concomitant]
     Active Substance: FAMOTIDINE
     Indication: Gastrooesophageal reflux disease
     Route: 048
  11. PEPCID [Concomitant]
     Active Substance: FAMOTIDINE
     Indication: Gastrooesophageal reflux disease
  12. PEPCID [Concomitant]
     Active Substance: FAMOTIDINE
     Indication: Dyspepsia
  13. PEPCID [Concomitant]
     Active Substance: FAMOTIDINE
     Indication: Dyspepsia
  14. FISH OIL [Concomitant]
     Active Substance: FISH OIL
     Indication: Gastrooesophageal reflux disease
     Route: 048
     Dates: start: 2007
  15. CYANOCOBALAMIN [Concomitant]
     Active Substance: CYANOCOBALAMIN
     Indication: Paraesthesia
     Route: 030
     Dates: start: 2006
  16. ESTRADIOL [Concomitant]
     Active Substance: ESTRADIOL
     Indication: Hormone replacement therapy
     Route: 062

REACTIONS (3)
  - Device issue [Unknown]
  - Product dose omission issue [Unknown]
  - No adverse event [Unknown]

NARRATIVE: CASE EVENT DATE: 20240708
